FAERS Safety Report 8675981 (Version 2)
Quarter: 2012Q4

REPORT INFORMATION
  Report Type: 
  Country: NO (occurrence: NO)
  Receive Date: 20120720
  Receipt Date: 20121003
  Transmission Date: 20130627
  Serious: Yes (Disabling, Other)
  Sender: FDA-Public Use
  Company Number: PHHY2012NO061720

PATIENT
  Age: 58 None
  Sex: Male

DRUGS (7)
  1. ZOMETA [Suspect]
     Indication: MULTIPLE MYELOMA
     Dosage: UNK UKN, UNK
     Route: 065
  2. ZOMETA [Suspect]
  3. MAREVAN [Concomitant]
     Route: 065
  4. SELO-ZOK [Concomitant]
     Route: 065
  5. THALIDOMIDE [Concomitant]
     Route: 065
  6. SIMVASTATIN [Concomitant]
     Route: 065
  7. CITALOPRAM [Concomitant]
     Route: 065

REACTIONS (3)
  - Osteonecrosis of jaw [Not Recovered/Not Resolved]
  - Bone lesion [Unknown]
  - Exposed bone in jaw [Unknown]
